FAERS Safety Report 8045166-X (Version None)
Quarter: 2012Q1

REPORT INFORMATION
  Report Type: 
  Country: None (occurrence: None)
  Receive Date: 20120113
  Receipt Date: 20111205
  Transmission Date: 20120608
  Serious: Yes (Hospitalization)
  Sender: FDA-Public Use
  Company Number: US-ASTRAZENECA-2011SE73530

PATIENT
  Age: 44 Year
  Sex: Female
  Weight: 70.3 kg

DRUGS (6)
  1. TOPAMAX [Concomitant]
  2. CLONEPINE [Concomitant]
  3. SEROQUEL XR [Suspect]
     Indication: DEPRESSION
     Route: 048
     Dates: start: 20050301
  4. SEROQUEL XR [Suspect]
     Indication: BIPOLAR DISORDER
     Route: 048
     Dates: start: 20050301
  5. SEROQUEL XR [Suspect]
     Indication: SLEEP DISORDER
     Route: 048
     Dates: start: 20050301
  6. EFFEXOR [Concomitant]

REACTIONS (5)
  - PANCREATITIS [None]
  - WEIGHT DECREASED [None]
  - PAIN [None]
  - DRUG PRESCRIBING ERROR [None]
  - DIABETES MELLITUS [None]
